FAERS Safety Report 9728274 (Version 1)
Quarter: 2013Q4

REPORT INFORMATION
  Report Type: Spontaneous
  Country: US (occurrence: None)
  Receive Date: 20131203
  Receipt Date: 20131203
  Transmission Date: 20140711
  Serious: No
  Sender: FDA-Public Use
  Company Number: None

PATIENT
  Sex: 0

DRUGS (1)
  1. AFINITOR [Suspect]
     Indication: PANCREATIC CARCINOMA
     Route: 048
     Dates: start: 201306

REACTIONS (5)
  - Diarrhoea [None]
  - Blood glucose increased [None]
  - Epistaxis [None]
  - Dyspnoea [None]
  - Liver function test abnormal [None]
